FAERS Safety Report 13458331 (Version 1)
Quarter: 2017Q2

REPORT INFORMATION
  Report Type: Spontaneous
  Country: US (occurrence: US)
  Receive Date: 20170419
  Receipt Date: 20170419
  Transmission Date: 20170830
  Serious: Yes (Other)
  Sender: FDA-Public Use
  Company Number: US-PFIZER INC-2017169627

PATIENT
  Age: 34 Year
  Sex: Female
  Weight: 93.44 kg

DRUGS (2)
  1. DEPO-PROVERA [Suspect]
     Active Substance: MEDROXYPROGESTERONE ACETATE
     Indication: CONTRACEPTION
     Dosage: 104 MG (INJECTION LEFT THIGH)
     Route: 058
     Dates: start: 20170412
  2. IMITREX [Concomitant]
     Active Substance: SUMATRIPTAN SUCCINATE
     Indication: HEADACHE
     Dosage: 100 MG, AS NEEDED

REACTIONS (2)
  - Injection site swelling [Unknown]
  - Feeling hot [Unknown]
